FAERS Safety Report 21116970 (Version 1)
Quarter: 2022Q3

REPORT INFORMATION
  Report Type: Spontaneous
  Country: ES (occurrence: ES)
  Receive Date: 20220722
  Receipt Date: 20220722
  Transmission Date: 20221026
  Serious: Yes (Hospitalization)
  Sender: FDA-Public Use
  Company Number: None

PATIENT
  Age: 60 Year
  Sex: Male

DRUGS (6)
  1. PREGABALIN [Suspect]
     Active Substance: PREGABALIN
     Indication: Pain
     Dosage: PREGABALINA (3897A), UNIT DOSE : 150MG , FREQUENCY TIME :1 DAY  , DURATION: 3 DAYS
     Dates: start: 20220510, end: 20220512
  2. METAMIZOLE [Suspect]
     Active Substance: METAMIZOLE
     Indication: Pain
     Dosage: METAMIZOL (111A) ,UNIT DOSE :175 MG   , FREQUENCY TIME : 1 DAY , DURATION  : 11 DAY
     Dates: start: 20220510, end: 20220520
  3. ACETAMINOPHEN [Suspect]
     Active Substance: ACETAMINOPHEN
     Indication: Pain
     Dosage: PARACETAMOL (12A), UNIT DOSE : 3 GRAM  , FREQUENCY TIME : 1 DAY , DURATION : 16 DAYS
     Route: 065
     Dates: start: 20220510, end: 20220525
  4. TRAMADOL HYDROCHLORIDE [Suspect]
     Active Substance: TRAMADOL HYDROCHLORIDE
     Indication: Pain
     Dosage: TRAMADOL HIDROCLORURO (2389CH),UNIT DOSE :50 MG  , FREQUENCY TIME :1 AS REQUIRED  , DURATION : 14 DA
     Dates: start: 20220510, end: 20220523
  5. IBUPROFEN [Suspect]
     Active Substance: IBUPROFEN
     Indication: Pain
     Dosage: IBUPROFENO (1769A) , UNIT DOSE : 1800 MG , FREQUENCY TIME :1 TOTAL  , DURATION : 15 DAYS
     Dates: start: 20220510, end: 20220524
  6. MORPHINE [Concomitant]
     Active Substance: MORPHINE
     Indication: Pain
     Dosage: MORFINA (1982A) , UNIT DOSE :4 MG  , FREQUENCY TIME :1 AS REQUIRED
     Dates: start: 20220510

REACTIONS (1)
  - Hyperhidrosis [Recovered/Resolved]

NARRATIVE: CASE EVENT DATE: 20220510
